FAERS Safety Report 20909989 (Version 1)
Quarter: 2022Q2

REPORT INFORMATION
  Report Type: Report from Study
  Country: HU (occurrence: HU)
  Receive Date: 20220603
  Receipt Date: 20220603
  Transmission Date: 20220721
  Serious: Yes (Death, Other)
  Sender: FDA-Public Use
  Company Number: HU-SUN PHARMACEUTICAL INDUSTRIES LTD-2022R1-339259

PATIENT
  Age: 50 Day
  Weight: 4 kg

DRUGS (2)
  1. PROPAFENONE [Suspect]
     Active Substance: PROPAFENONE
     Indication: Supraventricular tachycardia
     Dosage: 1 MILLIGRAM/KILOGRAM
     Route: 048
  2. PROPAFENONE [Suspect]
     Active Substance: PROPAFENONE
     Indication: Supraventricular tachycardia
     Dosage: UNK
     Route: 042

REACTIONS (2)
  - Arrhythmia [Fatal]
  - Ventricular tachycardia [Fatal]
